FAERS Safety Report 10233622 (Version 1)
Quarter: 2014Q2

REPORT INFORMATION
  Report Type: Spontaneous
  Country: GB (occurrence: GB)
  Receive Date: 20140612
  Receipt Date: 20140612
  Transmission Date: 20141212
  Serious: Yes (Death, Other)
  Sender: FDA-Public Use
  Company Number: GB-TEVA-486831ISR

PATIENT
  Age: 79 Year
  Sex: Male

DRUGS (1)
  1. WARFARIN [Suspect]
     Indication: ATRIAL FIBRILLATION
     Route: 048

REACTIONS (4)
  - Cerebral haemorrhage [Fatal]
  - Fall [Fatal]
  - Coma scale abnormal [Not Recovered/Not Resolved]
  - Brain herniation [Not Recovered/Not Resolved]
